FAERS Safety Report 20422403 (Version 5)
Quarter: 2022Q1

REPORT INFORMATION
  Report Type: Report from Study
  Country: CN (occurrence: CN)
  Receive Date: 20220203
  Receipt Date: 20220301
  Transmission Date: 20220423
  Serious: Yes (Death)
  Sender: FDA-Public Use
  Company Number: CN-DSJP-DSE-2022-102968

PATIENT
  Age: 69 Year
  Sex: Male
  Weight: 74 kg

DRUGS (11)
  1. EDOXABAN [Suspect]
     Active Substance: EDOXABAN
     Indication: Atrial fibrillation
     Dosage: 60 MG, QD
     Route: 048
     Dates: start: 20220106, end: 20220125
  2. ANTI DIABETES [Concomitant]
     Indication: Type 2 diabetes mellitus
     Dosage: UNK
  3. ANGIOTENSIN II RECEPTOR BLOCKERS (ARBS) [Concomitant]
     Indication: Hypertension
     Dosage: UNK
  4. UNSPECIFIED INGREDIENT [Concomitant]
     Active Substance: UNSPECIFIED INGREDIENT
     Indication: Hypertension
     Dosage: UNK
  5. ACARBOSE [Concomitant]
     Active Substance: ACARBOSE
     Indication: Type 2 diabetes mellitus
     Dosage: 50 MG, QD
     Route: 048
     Dates: start: 2012
  6. ATORVASTATIN CALCIUM [Concomitant]
     Active Substance: ATORVASTATIN CALCIUM
     Indication: Lipid metabolism disorder
     Dosage: 20 MG, QD
     Route: 048
     Dates: start: 202106
  7. LEVAMLODIPINE BESYLATE [Concomitant]
     Active Substance: LEVAMLODIPINE BESYLATE
     Indication: Hypertension
     Dosage: 5 MG, QD
     Route: 048
     Dates: start: 202106
  8. RECOMBINANT INSULIN GLARGINE [Concomitant]
     Indication: Type 2 diabetes mellitus
     Dosage: 30 IU
     Route: 058
     Dates: start: 202103
  9. IRBESARTAN [Concomitant]
     Active Substance: IRBESARTAN
     Indication: Hypertension
     Dosage: 150 MG, BID
     Route: 048
     Dates: start: 202106
  10. EMPAGLIFLOZIN [Concomitant]
     Active Substance: EMPAGLIFLOZIN
     Indication: Type 2 diabetes mellitus
     Dosage: 10 MG, QD
     Route: 048
     Dates: start: 202103
  11. KUAI WEI [Concomitant]
     Indication: Gastrointestinal disorder
     Dosage: 6 UNK, TID
     Route: 048
     Dates: start: 20220107

REACTIONS (2)
  - Cardiac arrest [Fatal]
  - Gastrointestinal haemorrhage [Not Recovered/Not Resolved]

NARRATIVE: CASE EVENT DATE: 20220122
